FAERS Safety Report 5817352-8 (Version None)
Quarter: 2008Q3

REPORT INFORMATION
  Report Type: 
  Country: None (occurrence: None)
  Receive Date: 20080722
  Receipt Date: 20080714
  Transmission Date: 20090109
  Serious: Yes (Hospitalization)
  Sender: FDA-Public Use
  Company Number: ZA-TEVA-174516ISR

PATIENT
  Age: 68 Year
  Sex: Female
  Weight: 33 kg

DRUGS (9)
  1. FLUOROURACIL [Suspect]
     Indication: COLORECTAL CANCER
     Route: 042
     Dates: start: 20080218
  2. FOLINIC ACID [Suspect]
     Indication: COLORECTAL CANCER
     Dates: start: 20080218
  3. IRINOTECAN HCL [Suspect]
     Indication: COLORECTAL CANCER
     Dates: start: 20080218
  4. SUNITINIB [Suspect]
     Indication: COLORECTAL CANCER
     Route: 048
     Dates: start: 20080218
  5. HYDROCHLOROTHIAZIDE [Concomitant]
     Indication: HYPERTENSION
     Dates: start: 20080229
  6. PERINDOPRIL ERBUMINE [Concomitant]
     Indication: HYPERTENSION
     Dates: start: 20080229
  7. OMEPRAZOLE [Concomitant]
     Indication: GASTRITIS
     Dates: start: 20080226
  8. LOPERAMIDE HCL [Concomitant]
     Indication: DIARRHOEA
     Dates: start: 20080213
  9. SYNAP FORTE (CAFFEINE, DEXTROPROPOXYPHENE NAPSILATE, DIPHENHYDRAMINE H [Concomitant]
     Indication: PAIN
     Dates: start: 20080207

REACTIONS (2)
  - DEHYDRATION [None]
  - ORAL CANDIDIASIS [None]
